FAERS Safety Report 10390154 (Version 2)
Quarter: 2014Q4

REPORT INFORMATION
  Report Type: Report from Study
  Country: JP (occurrence: None)
  Receive Date: 20140814
  Receipt Date: 20141204
  Transmission Date: 20150528
  Serious: Yes (Other)
  Sender: FDA-Public Use
  Company Number: B140806034

PATIENT
  Age: 19 Year
  Sex: Female

DRUGS (9)
  1. AMIYU, GRANULE (L-ISOLEUCINE, L-LEUCINE, L-LYSINE HYDROCHLORIDE, L-METHIONINE, L-PHENYLALANINE, L-THREONINE, L-TRYPTOPHAN, L-VALINE, L-HISTIDINE HYDROCHLORIDE HYDATE) [Concomitant]
  2. UNKNOWN DRUG (SODIUM BENZOATE) [Concomitant]
  3. NASONEX, NASAL (MOMETASONE FUROATE HYDRATE) [Concomitant]
  4. PATANOL, OPHTHALMIC SOLUTION (OLOPATADINE HYDROCHLORIDE) [Concomitant]
  5. ALESION, DRY SYRUP (EPINASTINE HYDROCHLORIDE) [Concomitant]
  6. BUPHENYL [Suspect]
     Active Substance: SODIUM PHENYLBUTYRATE
     Indication: UREA CYCLE ENZYME DEFICIENCY
     Route: 048
     Dates: start: 20130205, end: 20130307
  7. SINGULAIR, CHEWABLE TABLETS (MONTELUKAST SODIUM) [Concomitant]
  8. UNKNOWN DRUG (CITRULLINE) [Concomitant]
  9. MONILAC, SYRUP ( LACTULOSE) [Concomitant]

REACTIONS (2)
  - Alopecia [None]
  - Affective disorder [None]

NARRATIVE: CASE EVENT DATE: 20140123
